FAERS Safety Report 9378228 (Version 1)
Quarter: 2013Q3

REPORT INFORMATION
  Report Type: Spontaneous
  Country: US (occurrence: US)
  Receive Date: 20130701
  Receipt Date: 20130701
  Transmission Date: 20140515
  Serious: No
  Sender: FDA-Public Use
  Company Number: US-US-EMD SERONO, INC.-7141450

PATIENT
  Sex: Female
  Weight: 77 kg

DRUGS (8)
  1. REBIF [Suspect]
     Indication: MULTIPLE SCLEROSIS
     Route: 058
     Dates: start: 20100713, end: 2012
  2. LEVOTHYROXINE [Concomitant]
     Indication: THYROID DISORDER
     Dates: start: 2012
  3. LEXAPRO [Concomitant]
     Indication: DEPRESSION
     Dates: start: 2009
  4. METOPROLOL [Concomitant]
     Indication: HYPERTENSION
     Dates: start: 2012
  5. XANAX [Concomitant]
     Indication: ANXIETY
  6. XANAX [Concomitant]
     Indication: MUSCLE SPASMS
  7. VITAMIN D                          /00107901/ [Concomitant]
     Indication: HYPOVITAMINOSIS
  8. PROTONIX                           /01263201/ [Concomitant]
     Indication: GASTROOESOPHAGEAL REFLUX DISEASE
     Dates: start: 2009

REACTIONS (3)
  - Fatigue [Unknown]
  - Depression [Unknown]
  - Influenza like illness [Unknown]
